FAERS Safety Report 5410910-4 (Version None)
Quarter: 2007Q3

REPORT INFORMATION
  Report Type: 
  Country: None (occurrence: None)
  Receive Date: 20070809
  Receipt Date: 20070809
  Transmission Date: 20080115
  Serious: Yes (Hospitalization)
  Sender: FDA-Public Use
  Company Number: None

PATIENT
  Age: 66 Year
  Sex: Male
  Weight: 65 kg

DRUGS (1)
  1. LOVENOX [Suspect]
     Dosage: SUBCUTANEOUS;40.0
     Dates: start: 20070713, end: 20070727

REACTIONS (2)
  - INFUSION SITE HAEMORRHAGE [None]
  - THROMBOCYTOPENIA [None]
